FAERS Safety Report 4268746-6 (Version None)
Quarter: 2004Q1

REPORT INFORMATION
  Report Type: 
  Country: None (occurrence: None)
  Receive Date: 20040109
  Receipt Date: 20040105
  Transmission Date: 20041129
  Serious: Yes (Other)
  Sender: FDA-Public Use
  Company Number: FRWYE376830OCT03

PATIENT
  Age: 37 Year
  Sex: Male

DRUGS (4)
  1. RAPAMUNE [Suspect]
     Indication: PROPHYLAXIS AGAINST TRANSPLANT REJECTION
     Dosage: 8 MG DAILY AT TIME OF EVENT ONSET ORAL
     Route: 048
     Dates: start: 20030619, end: 20030101
  2. AZATHIOPRINE [Concomitant]
  3. PREDNISONE [Concomitant]
  4. RAMIPRIL [Concomitant]

REACTIONS (3)
  - CONDITION AGGRAVATED [None]
  - GLOMERULONEPHRITIS MINIMAL LESION [None]
  - PROTEINURIA [None]
